FAERS Safety Report 6092975-2 (Version None)
Quarter: 2009Q1

REPORT INFORMATION
  Report Type: 
  Country: None (occurrence: None)
  Receive Date: 20090224
  Receipt Date: 20090219
  Transmission Date: 20090719
  Serious: Yes (Death)
  Sender: FDA-Public Use
  Company Number: CERZ-1000527

PATIENT
  Sex: Female

DRUGS (1)
  1. CEREZYME [Suspect]
     Indication: GAUCHER'S DISEASE
     Dosage: 800 U, Q2W, INTRAVENOUS
     Route: 042
     Dates: start: 20081219, end: 20090216

REACTIONS (1)
  - DEATH [None]
